FAERS Safety Report 14305008 (Version 1)
Quarter: 2017Q4

REPORT INFORMATION
  Report Type: Spontaneous
  Country: JP (occurrence: JP)
  Receive Date: 20171219
  Receipt Date: 20171219
  Transmission Date: 20180321
  Serious: Yes (Hospitalization, Other)
  Sender: FDA-Public Use
  Company Number: JP-OTSUKA-03100-JPN-07-0125

PATIENT
  Age: 56 Year
  Sex: Male
  Weight: 59 kg

DRUGS (15)
  1. ABILIFY [Suspect]
     Active Substance: ARIPIPRAZOLE
     Dosage: 6 MG, QD
     Route: 048
     Dates: start: 20070222, end: 20070228
  2. ABILIFY [Suspect]
     Active Substance: ARIPIPRAZOLE
     Dosage: 12 MG, QD
     Route: 048
     Dates: start: 20061001, end: 20070221
  3. LUVOX [Concomitant]
     Active Substance: FLUVOXAMINE MALEATE
     Dosage: 50 MG, QD
     Route: 048
     Dates: start: 20070215, end: 20070221
  4. ANAFRANIL [Concomitant]
     Active Substance: CLOMIPRAMINE HYDROCHLORIDE
     Dosage: 25 MG, BID
     Route: 048
     Dates: start: 20070215, end: 20070312
  5. NUTRITIONAL [Concomitant]
     Indication: NUTRITIONAL SUPPLEMENTATION
     Dosage: 750 MG, UNK
     Route: 048
     Dates: start: 20070124, end: 20070312
  6. NUTRITIONAL [Concomitant]
     Indication: DECREASED APPETITE
  7. TETRAMIDE [Concomitant]
     Active Substance: MIANSERIN
     Dosage: 30 MG, QD
     Route: 048
     Dates: start: 20070208, end: 20070312
  8. LEXOTAN [Concomitant]
     Active Substance: BROMAZEPAM
     Dosage: 5 MG, TID
     Route: 048
     Dates: start: 20070201, end: 20070312
  9. FLUVOXAMINE [Concomitant]
     Active Substance: FLUVOXAMINE
     Indication: DEPRESSION
     Dosage: 150MG 25JAN07-14FEB07, 50MG 15FEB07-21FEB07  TABS
     Route: 048
     Dates: start: 20070125, end: 20070221
  10. SEROQUEL [Concomitant]
     Active Substance: QUETIAPINE FUMARATE
     Dosage: 200 MG, QD
     Route: 048
     Dates: start: 20061001, end: 20070309
  11. ENSURE [Concomitant]
     Active Substance: AMINO ACIDS\DEXTROSE\ELECTROLYTES NOS\SOYBEAN OIL\VITAMINS
     Dosage: LIQUID
     Dates: start: 20070124, end: 20070312
  12. TETRAMIDE [Concomitant]
     Active Substance: MIANSERIN
     Dosage: 60 MG, QD
     Route: 048
     Dates: start: 20061001, end: 20070207
  13. LUVOX [Concomitant]
     Active Substance: FLUVOXAMINE MALEATE
     Dosage: 150 MG, QD
     Route: 048
     Dates: start: 20070125, end: 20070214
  14. ENSURE H [Concomitant]
     Dosage: 250 ML, TID
     Route: 048
     Dates: start: 20070124, end: 20070312
  15. QUETIAPINE. [Concomitant]
     Active Substance: QUETIAPINE
     Indication: INSOMNIA
     Dosage: 100MG
     Route: 048
     Dates: start: 20061001, end: 20070309

REACTIONS (4)
  - Akinesia [Unknown]
  - Neuroleptic malignant syndrome [Recovering/Resolving]
  - Haematuria [Unknown]
  - Pneumonia aspiration [Recovered/Resolved]

NARRATIVE: CASE EVENT DATE: 20070310
